FAERS Safety Report 15384765 (Version 3)
Quarter: 2019Q3

REPORT INFORMATION
  Report Type: Spontaneous
  Country: US (occurrence: US)
  Receive Date: 20180914
  Receipt Date: 20190911
  Transmission Date: 20191004
  Serious: Yes (Hospitalization, Other)
  Sender: FDA-Public Use
  Company Number: US-ELI_LILLY_AND_COMPANY-US201809003055

PATIENT
  Sex: Female

DRUGS (3)
  1. FORTEO [Suspect]
     Active Substance: TERIPARATIDE
     Indication: PRODUCT USED FOR UNKNOWN INDICATION
     Dosage: UNK, UNKNOWN
     Route: 065
     Dates: start: 2017
  2. PLAVIX [Concomitant]
     Active Substance: CLOPIDOGREL BISULFATE
     Indication: PRODUCT USED FOR UNKNOWN INDICATION
  3. FORTEO [Suspect]
     Active Substance: TERIPARATIDE
     Dosage: UNK
     Dates: end: 201812

REACTIONS (15)
  - Secretion discharge [Unknown]
  - Gait disturbance [Recovering/Resolving]
  - Head injury [Unknown]
  - Abdominal pain upper [Recovering/Resolving]
  - Fall [Unknown]
  - Pollakiuria [Unknown]
  - Diarrhoea [Recovering/Resolving]
  - Eye contusion [Unknown]
  - Micturition urgency [Unknown]
  - Ill-defined disorder [Recovering/Resolving]
  - Cerebral haemorrhage [Recovered/Resolved]
  - Cerebral disorder [Unknown]
  - Weight decreased [Recovering/Resolving]
  - Abdominal infection [Recovering/Resolving]
  - Decreased appetite [Recovering/Resolving]

NARRATIVE: CASE EVENT DATE: 20180901
